FAERS Safety Report 10642432 (Version 1)
Quarter: 2014Q4

REPORT INFORMATION
  Report Type: Spontaneous
  Country: DE (occurrence: None)
  Receive Date: 20141208
  Receipt Date: 20141208
  Transmission Date: 20150529
  Serious: Yes (Other)
  Sender: FDA-Public Use
  Company Number: NGX_02567_2014

PATIENT
  Sex: Female
  Weight: 73 kg

DRUGS (1)
  1. QUTENZA [Suspect]
     Active Substance: CAPSAICIN
     Indication: COMPLEX REGIONAL PAIN SYNDROME
     Dosage: DF, TRANSDERMAL
     Dates: start: 201407, end: 201407

REACTIONS (2)
  - Condition aggravated [None]
  - Complex regional pain syndrome [None]

NARRATIVE: CASE EVENT DATE: 201407
